FAERS Safety Report 4775977-5 (Version None)
Quarter: 2005Q3

REPORT INFORMATION
  Report Type: 
  Country: None (occurrence: None)
  Receive Date: 20050914
  Receipt Date: 20050211
  Transmission Date: 20060218
  Serious: Yes (Other)
  Sender: FDA-Public Use
  Company Number: 163-20785-05020360

PATIENT
  Sex: 0

DRUGS (2)
  1. THALOMID [Suspect]
     Indication: NEOPLASM
     Dosage: ORAL
     Route: 048
  2. IRINOTECAN (IRINOTECAN) (UNKNOWN) [Suspect]
     Indication: NEOPLASM

REACTIONS (1)
  - VOMITING [None]
